FAERS Safety Report 14482060 (Version 2)
Quarter: 2019Q4

REPORT INFORMATION
  Report Type: Spontaneous
  Country: DK (occurrence: DK)
  Receive Date: 20180202
  Receipt Date: 20191227
  Transmission Date: 20200122
  Serious: Yes (Life-Threatening, Hospitalization, Other)
  Sender: FDA-Public Use
  Company Number: DK-B.I. PHARMACEUTICALS,INC./RIDGEFIELD-2018-12-000328

PATIENT
  Age: 62 Year
  Sex: Female

DRUGS (7)
  1. MULTIVITAMIN [Concomitant]
     Active Substance: VITAMINS
     Indication: PRODUCT USED FOR UNKNOWN INDICATION
     Dosage: DOSIS: 1 TABL. MORGEN. 1 TABLET MORNING
     Route: 048
     Dates: start: 20161113
  2. OPTIMOL [TIMOLOL MALEATE] [Concomitant]
     Indication: GLAUCOMA
     Dosage: 1 DROP TWICE DAILY IN EACH EYE.  STRENGTH: 5 MG/ML
     Route: 050
     Dates: start: 20160108
  3. METFORMIN [Concomitant]
     Active Substance: METFORMIN HYDROCHLORIDE
     Indication: TYPE 2 DIABETES MELLITUS
     Dosage: STYRKE: 500 MG.
     Route: 048
     Dates: start: 20160301
  4. JARDIANCE [Suspect]
     Active Substance: EMPAGLIFLOZIN
     Indication: TYPE 2 DIABETES MELLITUS
     Dosage: STYRKE: 25 MG.
     Route: 048
     Dates: start: 20150826, end: 20180112
  5. ATORVASTATIN [Concomitant]
     Active Substance: ATORVASTATIN
     Indication: CARDIOVASCULAR DISORDER
     Dosage: STYRKE: 10 MG.
     Route: 048
     Dates: start: 20150826
  6. VICTOZA [Concomitant]
     Active Substance: LIRAGLUTIDE
     Indication: TYPE 2 DIABETES MELLITUS
     Dosage: STYRKE: 6 MG/ML
     Route: 058
     Dates: start: 20150212
  7. LATANOPROST. [Concomitant]
     Active Substance: LATANOPROST
     Indication: GLAUCOMA
     Dosage: DOSE: 1 DROP ONCE DAILY IN EACH EYE.  STRENGTH: 50 MICROGRAM/ML
     Route: 050
     Dates: start: 20160107

REACTIONS (12)
  - Urinary tract infection [Unknown]
  - Tachypnoea [Unknown]
  - Sepsis [Unknown]
  - Dyspnoea [Unknown]
  - Vomiting [Unknown]
  - Balance disorder [Not Recovered/Not Resolved]
  - Discomfort [Unknown]
  - Pneumonia influenzal [Unknown]
  - Ketoacidosis [Recovered/Resolved]
  - Brain oedema [Unknown]
  - Heart rate increased [Unknown]
  - Abdominal pain [Unknown]

NARRATIVE: CASE EVENT DATE: 201801
